FAERS Safety Report 7553680-6 (Version None)
Quarter: 2011Q2

REPORT INFORMATION
  Report Type: 
  Country: None (occurrence: None)
  Receive Date: 20110614
  Receipt Date: 20110614
  Transmission Date: 20111010
  Serious: No
  Sender: FDA-Public Use
  Company Number: None

PATIENT
  Age: 49 Year
  Sex: Male
  Weight: 81.6475 kg

DRUGS (1)
  1. CEFDINIR [Suspect]
     Indication: PHARYNGITIS STREPTOCOCCAL
     Dosage: 300MG TWICE A DAY PO
     Route: 048
     Dates: start: 20110606, end: 20110613

REACTIONS (3)
  - HICCUPS [None]
  - NAUSEA [None]
  - VOMITING [None]
